FAERS Safety Report 15613703 (Version 3)
Quarter: 2025Q2

REPORT INFORMATION
  Report Type: Spontaneous
  Country: GB (occurrence: GB)
  Receive Date: 20181113
  Receipt Date: 20250502
  Transmission Date: 20250716
  Serious: Yes (Other)
  Sender: MYLAN
  Company Number: GB-GKKIN-20180606-PI440650-8

PATIENT
  Sex: Female

DRUGS (40)
  1. LOPINAVIR\RITONAVIR [Suspect]
     Active Substance: LOPINAVIR\RITONAVIR
     Indication: HIV infection
  2. LOPINAVIR\RITONAVIR [Suspect]
     Active Substance: LOPINAVIR\RITONAVIR
     Route: 065
  3. LOPINAVIR\RITONAVIR [Suspect]
     Active Substance: LOPINAVIR\RITONAVIR
     Route: 065
  4. LOPINAVIR\RITONAVIR [Suspect]
     Active Substance: LOPINAVIR\RITONAVIR
  5. TENOFOVIR [Suspect]
     Active Substance: TENOFOVIR
     Indication: HIV infection
  6. TENOFOVIR [Suspect]
     Active Substance: TENOFOVIR
     Route: 065
  7. TENOFOVIR [Suspect]
     Active Substance: TENOFOVIR
     Route: 065
  8. TENOFOVIR [Suspect]
     Active Substance: TENOFOVIR
  9. LAMIVUDINE [Suspect]
     Active Substance: LAMIVUDINE
     Indication: HIV infection
  10. LAMIVUDINE [Suspect]
     Active Substance: LAMIVUDINE
     Route: 065
  11. LAMIVUDINE [Suspect]
     Active Substance: LAMIVUDINE
     Route: 065
  12. LAMIVUDINE [Suspect]
     Active Substance: LAMIVUDINE
  13. ATORVASTATIN [Concomitant]
     Active Substance: ATORVASTATIN
     Dosage: 1 DOSAGE FORM, PM (1 DOSAGE FORM, ONCE A DAY, NIGHT)
     Dates: start: 20081120
  14. ATORVASTATIN [Concomitant]
     Active Substance: ATORVASTATIN
     Dosage: 1 DOSAGE FORM, PM (1 DOSAGE FORM, ONCE A DAY, NIGHT)
     Route: 065
     Dates: start: 20081120
  15. ATORVASTATIN [Concomitant]
     Active Substance: ATORVASTATIN
     Dosage: 1 DOSAGE FORM, PM (1 DOSAGE FORM, ONCE A DAY, NIGHT)
     Route: 065
     Dates: start: 20081120
  16. ATORVASTATIN [Concomitant]
     Active Substance: ATORVASTATIN
     Dosage: 1 DOSAGE FORM, PM (1 DOSAGE FORM, ONCE A DAY, NIGHT)
     Dates: start: 20081120
  17. OMEPRAZOLE [Concomitant]
     Active Substance: OMEPRAZOLE
     Dosage: 2 DOSAGE FORM, QD (2 DOSAGE FORM, ONCE A DAY)
     Dates: start: 20141120
  18. OMEPRAZOLE [Concomitant]
     Active Substance: OMEPRAZOLE
     Dosage: 2 DOSAGE FORM, QD (2 DOSAGE FORM, ONCE A DAY)
     Route: 065
     Dates: start: 20141120
  19. OMEPRAZOLE [Concomitant]
     Active Substance: OMEPRAZOLE
     Dosage: 2 DOSAGE FORM, QD (2 DOSAGE FORM, ONCE A DAY)
     Route: 065
     Dates: start: 20141120
  20. OMEPRAZOLE [Concomitant]
     Active Substance: OMEPRAZOLE
     Dosage: 2 DOSAGE FORM, QD (2 DOSAGE FORM, ONCE A DAY)
     Dates: start: 20141120
  21. FERROUS FUMARATE [Concomitant]
     Active Substance: FERROUS FUMARATE
     Dosage: 3 DOSAGE FORM, QD (3 DOSAGE FORM, ONCE A DAY)
     Dates: start: 20150112
  22. FERROUS FUMARATE [Concomitant]
     Active Substance: FERROUS FUMARATE
     Dosage: 3 DOSAGE FORM, QD (3 DOSAGE FORM, ONCE A DAY)
     Route: 065
     Dates: start: 20150112
  23. FERROUS FUMARATE [Concomitant]
     Active Substance: FERROUS FUMARATE
     Dosage: 3 DOSAGE FORM, QD (3 DOSAGE FORM, ONCE A DAY)
     Route: 065
     Dates: start: 20150112
  24. FERROUS FUMARATE [Concomitant]
     Active Substance: FERROUS FUMARATE
     Dosage: 3 DOSAGE FORM, QD (3 DOSAGE FORM, ONCE A DAY)
     Dates: start: 20150112
  25. AMLODIPINE [Concomitant]
     Active Substance: AMLODIPINE BESYLATE
     Dosage: 1 DOSAGE FORM, QDN (1 DOSAGE FORM, ONCE A DAY)
  26. AMLODIPINE [Concomitant]
     Active Substance: AMLODIPINE BESYLATE
     Dosage: 1 DOSAGE FORM, QDN (1 DOSAGE FORM, ONCE A DAY)
     Route: 065
  27. AMLODIPINE [Concomitant]
     Active Substance: AMLODIPINE BESYLATE
     Dosage: 1 DOSAGE FORM, QDN (1 DOSAGE FORM, ONCE A DAY)
     Route: 065
  28. AMLODIPINE [Concomitant]
     Active Substance: AMLODIPINE BESYLATE
     Dosage: 1 DOSAGE FORM, QDN (1 DOSAGE FORM, ONCE A DAY)
  29. GLICLAZIDE [Concomitant]
     Active Substance: GLICLAZIDE
     Dosage: 2 DOSAGE FORM, QD (2 DOSAGE FORM, ONCE A DAY)
  30. GLICLAZIDE [Concomitant]
     Active Substance: GLICLAZIDE
     Dosage: 2 DOSAGE FORM, QD (2 DOSAGE FORM, ONCE A DAY)
     Route: 065
  31. GLICLAZIDE [Concomitant]
     Active Substance: GLICLAZIDE
     Dosage: 2 DOSAGE FORM, QD (2 DOSAGE FORM, ONCE A DAY)
     Route: 065
  32. GLICLAZIDE [Concomitant]
     Active Substance: GLICLAZIDE
     Dosage: 2 DOSAGE FORM, QD (2 DOSAGE FORM, ONCE A DAY)
  33. METFORMIN [Concomitant]
     Active Substance: METFORMIN HYDROCHLORIDE
     Dosage: 2 DOSAGE FORM, QD (2 DOSAGE FORM, ONCE A DAY)
     Dates: start: 20170602
  34. METFORMIN [Concomitant]
     Active Substance: METFORMIN HYDROCHLORIDE
     Dosage: 2 DOSAGE FORM, QD (2 DOSAGE FORM, ONCE A DAY)
     Route: 065
     Dates: start: 20170602
  35. METFORMIN [Concomitant]
     Active Substance: METFORMIN HYDROCHLORIDE
     Dosage: 2 DOSAGE FORM, QD (2 DOSAGE FORM, ONCE A DAY)
     Route: 065
     Dates: start: 20170602
  36. METFORMIN [Concomitant]
     Active Substance: METFORMIN HYDROCHLORIDE
     Dosage: 2 DOSAGE FORM, QD (2 DOSAGE FORM, ONCE A DAY)
     Dates: start: 20170602
  37. CANDESARTAN [Concomitant]
     Active Substance: CANDESARTAN
     Indication: Product used for unknown indication
     Dosage: 1 DOSAGE FORM, QD (1 DOSAGE FORM, ONCE A DAY)
  38. CANDESARTAN [Concomitant]
     Active Substance: CANDESARTAN
     Dosage: 1 DOSAGE FORM, QD (1 DOSAGE FORM, ONCE A DAY)
     Route: 065
  39. CANDESARTAN [Concomitant]
     Active Substance: CANDESARTAN
     Dosage: 1 DOSAGE FORM, QD (1 DOSAGE FORM, ONCE A DAY)
     Route: 065
  40. CANDESARTAN [Concomitant]
     Active Substance: CANDESARTAN
     Dosage: 1 DOSAGE FORM, QD (1 DOSAGE FORM, ONCE A DAY)

REACTIONS (2)
  - Viral mutation identified [Unknown]
  - Drug resistance [Unknown]
